FAERS Safety Report 8209066-4 (Version None)
Quarter: 2012Q1

REPORT INFORMATION
  Report Type: 
  Country: None (occurrence: None)
  Receive Date: 20120314
  Receipt Date: 20120308
  Transmission Date: 20120608
  Serious: Yes (Hospitalization)
  Sender: FDA-Public Use
  Company Number: JP-NOVOPROD-347016

PATIENT
  Age: 72 Year
  Sex: Male
  Weight: 60 kg

DRUGS (6)
  1. OPALMON [Concomitant]
     Dosage: 15RG/ QD
     Route: 048
  2. AMARYL [Concomitant]
     Dosage: 1 MG, QD
     Route: 048
  3. OLMESARTAN MEDOXOMIL [Concomitant]
     Dosage: 20 MG, QD
     Route: 048
  4. RINLAXER [Concomitant]
     Dosage: 375 MG, QD
     Route: 048
  5. VICTOZA [Suspect]
     Dosage: 0.6 MG, QD
     Route: 065
     Dates: start: 20120101
  6. VICTOZA [Suspect]
     Indication: PRODUCT USED FOR UNKNOWN INDICATION
     Dosage: 0.3 MG, QD
     Route: 065
     Dates: start: 20120101

REACTIONS (1)
  - PLEURISY [None]
